FAERS Safety Report 8150624-3 (Version None)
Quarter: 2012Q1

REPORT INFORMATION
  Report Type: 
  Country: None (occurrence: None)
  Receive Date: 20120220
  Receipt Date: 20120210
  Transmission Date: 20120608
  Serious: Yes (Other)
  Sender: FDA-Public Use
  Company Number: PHEH2012US000681

PATIENT
  Sex: Male

DRUGS (1)
  1. EXTAVIA [Suspect]
     Indication: MULTIPLE SCLEROSIS
     Dosage: 0.25 MG, QOD
     Route: 058
     Dates: start: 20110101

REACTIONS (4)
  - SENSORY DISTURBANCE [None]
  - MOBILITY DECREASED [None]
  - MEMORY IMPAIRMENT [None]
  - THYROID NEOPLASM [None]
